FAERS Safety Report 9453279 (Version 4)
Quarter: 2014Q2

REPORT INFORMATION
  Report Type: Spontaneous
  Country: IT (occurrence: US)
  Receive Date: 20130812
  Receipt Date: 20140513
  Transmission Date: 20141212
  Serious: Yes (Hospitalization, Other)
  Sender: FDA-Public Use
  Company Number: US-009507513-1308USA003203

PATIENT
  Sex: Female

DRUGS (2)
  1. FOSAMAX [Suspect]
     Indication: OSTEOPOROSIS
     Dosage: 70 MG, UNK
     Route: 048
     Dates: end: 2007
  2. FOSAMAX [Suspect]
     Dosage: 10 MG, QD
     Route: 048

REACTIONS (18)
  - Femur fracture [Unknown]
  - Intramedullary rod insertion [Unknown]
  - Internal fixation of fracture [Unknown]
  - Bone graft [Unknown]
  - Uterine dilation and curettage [Unknown]
  - Angina pectoris [Unknown]
  - Medical device removal [Unknown]
  - Road traffic accident [Unknown]
  - Head injury [Unknown]
  - Vascular insufficiency [Unknown]
  - Herpes zoster [Unknown]
  - Hypertension [Unknown]
  - Fracture nonunion [Unknown]
  - Device failure [Unknown]
  - Fall [Unknown]
  - Pelvic fracture [Unknown]
  - Fall [Unknown]
  - Coronary artery disease [Unknown]
